FAERS Safety Report 8178230 (Version 3)
Quarter: 2013Q2

REPORT INFORMATION
  Report Type: Spontaneous
  Country: US (occurrence: US)
  Receive Date: 20111012
  Receipt Date: 20130506
  Transmission Date: 20140414
  Serious: Yes (Hospitalization, Other)
  Sender: FDA-Public Use
  Company Number: US-ASTRAZENECA-2011SE59696

PATIENT
  Age: 36 Year
  Sex: Male
  Weight: 97.1 kg

DRUGS (2)
  1. TOPROL XL [Suspect]
     Route: 048
  2. MULTIVITAMIN [Concomitant]
     Dosage: DAILY

REACTIONS (3)
  - Limb traumatic amputation [Unknown]
  - Hypertension [Unknown]
  - Drug dose omission [Unknown]
